FAERS Safety Report 4496517-4 (Version None)
Quarter: 2004Q4

REPORT INFORMATION
  Report Type: 
  Country: None (occurrence: None)
  Receive Date: 20041109
  Receipt Date: 20041007
  Transmission Date: 20050328
  Serious: Yes (Hospitalization, Other)
  Sender: FDA-Public Use
  Company Number: PT-JNJFOC-20041002428

PATIENT
  Age: 35 Year
  Sex: Female

DRUGS (7)
  1. REMICADE [Suspect]
     Route: 042
  2. REMICADE [Suspect]
     Route: 042
  3. REMICADE [Suspect]
     Route: 042
  4. REMICADE [Suspect]
     Route: 042
  5. REMICADE [Suspect]
     Route: 042
  6. REMICADE [Suspect]
     Indication: CROHN'S DISEASE
     Route: 042
  7. METHOTREXATE [Concomitant]

REACTIONS (8)
  - ABDOMINAL PAIN [None]
  - ARTHRITIS [None]
  - CONDITION AGGRAVATED [None]
  - DIARRHOEA [None]
  - FEELING HOT [None]
  - HAEMATOCHEZIA [None]
  - RASH PAPULAR [None]
  - WEIGHT DECREASED [None]
